FAERS Safety Report 9083808 (Version 1)
Quarter: 2013Q1

REPORT INFORMATION
  Report Type: Spontaneous
  Country: US (occurrence: US)
  Receive Date: 20130130
  Receipt Date: 20130130
  Transmission Date: 20140127
  Serious: No
  Sender: FDA-Public Use
  Company Number: US-009507513-1301USA012890

PATIENT
  Sex: Male

DRUGS (4)
  1. ISENTRESS [Suspect]
     Indication: HIV INFECTION
     Dosage: 400 MG, BID
     Route: 048
  2. NORVASC [Concomitant]
  3. EPZICOM [Concomitant]
  4. PREZISTA [Concomitant]

REACTIONS (2)
  - Chemotherapy [Recovered/Resolved]
  - Asthenia [Recovered/Resolved]
